FAERS Safety Report 20406373 (Version 1)
Quarter: 2022Q1

REPORT INFORMATION
  Report Type: Spontaneous
  Country: US (occurrence: US)
  Receive Date: 20220131
  Receipt Date: 20220131
  Transmission Date: 20220424
  Serious: No
  Sender: FDA-Public Use
  Company Number: US-BAYER-2022A014231

PATIENT
  Age: 65 Year
  Sex: Female

DRUGS (12)
  1. BETASERON [Suspect]
     Active Substance: INTERFERON BETA-1B
     Indication: Multiple sclerosis
  2. OCREVUS [Concomitant]
     Active Substance: OCRELIZUMAB
  3. FOSAMAX [Concomitant]
     Active Substance: ALENDRONATE SODIUM
  4. ARMODAFINIL [Concomitant]
     Active Substance: ARMODAFINIL
  5. LIPITOR [Concomitant]
     Active Substance: ATORVASTATIN CALCIUM
  6. VITAMIN B COMPLEX NOS [Concomitant]
     Active Substance: CYANOCOBALAMIN\PYRIDOXINE HYDROCHLORIDE\RIBOFLAVIN\SODIUM PANTOTHENATE\THIAMINE HYDROCHLORIDE\VITAMI
  7. LIORESAL [Concomitant]
     Active Substance: BACLOFEN
  8. VITAMIN D3 [Concomitant]
     Active Substance: CHOLECALCIFEROL
  9. CEFIXIME [Concomitant]
     Active Substance: CEFIXIME
  10. FERGON [Concomitant]
     Active Substance: FERROUS GLUCONATE
  11. NEURONTIN [Concomitant]
     Active Substance: GABAPENTIN
  12. ZESTRIL [Concomitant]
     Active Substance: LISINOPRIL

REACTIONS (1)
  - Injection site pain [Not Recovered/Not Resolved]

NARRATIVE: CASE EVENT DATE: 20210601
